FAERS Safety Report 7062085-6 (Version None)
Quarter: 2010Q4

REPORT INFORMATION
  Report Type: 
  Country: None (occurrence: None)
  Receive Date: 20101026
  Receipt Date: 20101012
  Transmission Date: 20110411
  Serious: Yes (Hospitalization)
  Sender: FDA-Public Use
  Company Number: PHHY2010FR69096

PATIENT
  Sex: Female

DRUGS (8)
  1. TAREG [Suspect]
     Dosage: 80 MG DAILY
     Route: 048
  2. MABTHERA [Suspect]
     Indication: RHEUMATOID ARTHRITIS
     Dosage: 1000 MG
     Dates: start: 20100722
  3. CORTANCYL [Suspect]
     Dosage: 5 MG DAILY
     Route: 048
  4. ARAVA [Suspect]
     Dosage: 20 MG DAILY
     Route: 048
  5. ACETAMINOPHEN [Suspect]
     Indication: RHEUMATOID ARTHRITIS
     Dosage: 1 G, TID
     Route: 048
  6. OROCAL [Suspect]
     Dosage: 1 DF DAILY
     Route: 048
  7. VALACYCLOVIR HYDROCHLORIDE [Concomitant]
     Indication: HERPES VIRUS INFECTION
     Dosage: 500 MG, BID
     Route: 048
     Dates: start: 20100820, end: 20100827
  8. OFLOCET [Concomitant]
     Dosage: 400 MG, BID
     Route: 048
     Dates: start: 20100820, end: 20100923

REACTIONS (5)
  - GASTROENTERITIS [None]
  - GINGIVITIS ULCERATIVE [None]
  - HERPES VIRUS INFECTION [None]
  - JAW DISORDER [None]
  - PERIODONTAL DESTRUCTION [None]
